FAERS Safety Report 11105118 (Version 1)
Quarter: 2015Q2

REPORT INFORMATION
  Report Type: Spontaneous
  Country: US (occurrence: US)
  Receive Date: 20150511
  Receipt Date: 20150511
  Transmission Date: 20150821
  Serious: Yes (Other)
  Sender: FDA-Public Use
  Company Number: US-GLAXOSMITHKLINE-US2015GSK063161

PATIENT
  Age: 3 Month
  Sex: Male

DRUGS (1)
  1. MELPHALAN [Suspect]
     Active Substance: MELPHALAN
     Indication: RETINOBLASTOMA
     Dosage: UNK, TID
     Route: 013

REACTIONS (3)
  - Retinal haemorrhage [Unknown]
  - Off label use [Unknown]
  - Haemorrhage [Unknown]
